FAERS Safety Report 6395056-3 (Version None)
Quarter: 2009Q4

REPORT INFORMATION
  Report Type: 
  Country: None (occurrence: None)
  Receive Date: 20091009
  Receipt Date: 20091001
  Transmission Date: 20100525
  Serious: Yes (Hospitalization)
  Sender: FDA-Public Use
  Company Number: JP-ASTRAZENECA-2009SE15062

PATIENT
  Age: 69 Year
  Sex: Female

DRUGS (13)
  1. OMEPRAL [Suspect]
     Indication: GASTRIC ULCER HELICOBACTER
     Dosage: DOSE UNKNOWN
     Route: 048
  2. AMOXICILLIN [Concomitant]
     Indication: GASTRIC ULCER HELICOBACTER
     Dosage: DOSE UNKNOWN
     Route: 048
  3. CLARITHROMYCIN [Concomitant]
     Indication: GASTRIC ULCER HELICOBACTER
     Dosage: DOSE UNKNOWN
     Route: 048
  4. MUCOSTA [Concomitant]
     Dosage: DOSE UNKNOWN
     Route: 048
  5. CERCINE [Concomitant]
     Dosage: DOSE UNKNOWN
     Route: 048
  6. MAGNESIUM OXIDE [Concomitant]
     Dosage: DOSE UNKNOWN
     Route: 048
  7. ALOSENN [Concomitant]
     Dosage: DOSE UNKNOWN
     Route: 048
  8. DEPAS [Concomitant]
     Dosage: DOSE UNKNOWN
     Route: 048
  9. MYONAL [Concomitant]
     Dosage: DOSE UNKNOWN
     Route: 048
  10. MYSLEE [Concomitant]
     Dosage: DOSE UNKNOWN
     Route: 048
  11. JUVELA [Concomitant]
     Dosage: DOSE UNKNOWN
     Route: 048
  12. METHYCOBAL [Concomitant]
     Dosage: DOSE UNKNOWN
     Route: 065
  13. CHOREI-TO [Concomitant]
     Dosage: DOSE UNKNOWN
     Route: 048

REACTIONS (2)
  - DRUG ERUPTION [None]
  - RHABDOMYOLYSIS [None]
